FAERS Safety Report 8790066 (Version 1)
Quarter: 2012Q4

REPORT INFORMATION
  Report Type: 
  Country: US (occurrence: US)
  Receive Date: 20120917
  Receipt Date: 20120917
  Transmission Date: 20130627
  Serious: Yes (Hospitalization)
  Sender: FDA-Public Use
  Company Number: US-SANOFI-AVENTIS-2012SA067377

PATIENT
  Age: 48 Year
  Sex: Female

DRUGS (1)
  1. GLYBURIDE [Suspect]
     Indication: DRUG USE FOR UNKNOWN INDICATION
     Route: 048

REACTIONS (10)
  - Miosis [Unknown]
  - Drug level increased [Recovering/Resolving]
  - Overdose [Unknown]
  - Urinary incontinence [Unknown]
  - Snoring [Unknown]
  - Hypoglycaemic unconsciousness [Recovering/Resolving]
  - Hyperhidrosis [Recovering/Resolving]
  - Respiratory rate increased [Recovering/Resolving]
  - Coma scale abnormal [Recovering/Resolving]
  - Body temperature decreased [Recovering/Resolving]
